FAERS Safety Report 6746650-9 (Version None)
Quarter: 2010Q2

REPORT INFORMATION
  Report Type: 
  Country: None (occurrence: None)
  Receive Date: 20100528
  Receipt Date: 20091111
  Transmission Date: 20101027
  Serious: No
  Sender: FDA-Public Use
  Company Number: US-ASTRAZENECA-2009SE31616

PATIENT
  Age: 66 Year
  Sex: Female

DRUGS (3)
  1. PRILOSEC OTC [Suspect]
     Route: 048
     Dates: start: 20091105
  2. LEXAPRO [Concomitant]
     Dosage: UNKNOWN
  3. ANTIHYPERTENSIVES [Concomitant]
     Dosage: UNKNOWN

REACTIONS (4)
  - HEADACHE [None]
  - INAPPROPRIATE SCHEDULE OF DRUG ADMINISTRATION [None]
  - MALAISE [None]
  - VOMITING [None]
